FAERS Safety Report 11083738 (Version 1)
Quarter: 2015Q2

REPORT INFORMATION
  Report Type: Other
  Country: DE (occurrence: DE)
  Receive Date: 20150501
  Receipt Date: 20150501
  Transmission Date: 20150821
  Serious: Yes (Hospitalization)
  Sender: FDA-Public Use
  Company Number: DE-MYLANLABS-2015M1013217

PATIENT

DRUGS (9)
  1. TEMAZEPAM. [Concomitant]
     Active Substance: TEMAZEPAM
     Dosage: 10 MG, QD
  2. ABILIFY [Interacting]
     Active Substance: ARIPIPRAZOLE
     Dosage: 7.5 MG, QD
  3. FLUOXETINE [Suspect]
     Active Substance: FLUOXETINE\FLUOXETINE HYDROCHLORIDE
     Dosage: 40 MG, QD
     Dates: start: 20120412, end: 20120817
  4. QUILONUM RETARD [Concomitant]
     Active Substance: LITHIUM CARBONATE
     Dosage: 2.5 DF, QD
  5. TOPIRAMAT-CT [Concomitant]
     Dosage: 25MG BIS 150MG
     Dates: start: 20120719
  6. FLUOXETINE [Interacting]
     Active Substance: FLUOXETINE\FLUOXETINE HYDROCHLORIDE
     Dosage: 20 MG, QD
     Dates: start: 20120818, end: 20120820
  7. CETIRIZINE [Concomitant]
     Active Substance: CETIRIZINE HYDROCHLORIDE
     Dosage: 20 MG, QD
  8. JODTHYROX [Concomitant]
     Active Substance: LEVOTHYROXINE SODIUM\POTASSIUM IODIDE
     Dosage: 100 ?G, QD
  9. TAVOR [Concomitant]
     Active Substance: LORAZEPAM
     Dosage: 1.5 MG, QD
     Dates: start: 20120818

REACTIONS (2)
  - Mania [Recovered/Resolved]
  - Drug interaction [Unknown]

NARRATIVE: CASE EVENT DATE: 20120817
